FAERS Safety Report 5526334-5 (Version None)
Quarter: 2007Q4

REPORT INFORMATION
  Report Type: 
  Country: None (occurrence: None)
  Receive Date: 20071121
  Receipt Date: 20071121
  Transmission Date: 20080405
  Serious: No
  Sender: FDA-Public Use
  Company Number: None

PATIENT
  Sex: Female
  Weight: 63.5036 kg

DRUGS (1)
  1. GEODON [Suspect]
     Indication: SUICIDAL IDEATION
     Dosage: 10MG ONE TIME IV
     Route: 042
     Dates: start: 20070927

REACTIONS (1)
  - INCORRECT ROUTE OF DRUG ADMINISTRATION [None]
